FAERS Safety Report 12958846 (Version 4)
Quarter: 2019Q3

REPORT INFORMATION
  Report Type: Report from Study
  Country: JP (occurrence: JP)
  Receive Date: 20161121
  Receipt Date: 20190705
  Transmission Date: 20191004
  Serious: Yes (Death, Life-Threatening, Hospitalization, Other)
  Sender: FDA-Public Use
  Company Number: JP-BRISTOL-MYERS SQUIBB COMPANY-BMS-2015-033842

PATIENT
  Age: 69 Year
  Sex: Male
  Weight: 61 kg

DRUGS (3)
  1. NIVOLUMAB [Suspect]
     Active Substance: NIVOLUMAB
     Indication: MALIGNANT MELANOMA
     Dosage: 2 MG/KG, UNK
     Route: 041
     Dates: start: 20140926, end: 20150902
  2. NIVOLUMAB [Suspect]
     Active Substance: NIVOLUMAB
     Indication: PRODUCT USED FOR UNKNOWN INDICATION
     Dosage: UNK
     Route: 041
  3. DACARBAZINE. [Suspect]
     Active Substance: DACARBAZINE
     Indication: THERAPEUTIC PROCEDURE
     Dosage: 200 MG, UNK
     Route: 065
     Dates: start: 200910, end: 201409

REACTIONS (11)
  - Myelodysplastic syndrome [Unknown]
  - Abdominal discomfort [Recovered/Resolved]
  - Anaemia [Unknown]
  - Platelet transfusion [Unknown]
  - White blood cell count decreased [Unknown]
  - Enteritis [Recovering/Resolving]
  - Neutrophil count decreased [Recovered/Resolved]
  - Decreased appetite [Recovered/Resolved]
  - Packed red blood cell transfusion [Unknown]
  - Gastrointestinal haemorrhage [Fatal]
  - Platelet count decreased [Not Recovered/Not Resolved]

NARRATIVE: CASE EVENT DATE: 20150513
